FAERS Safety Report 17025369 (Version 1)
Quarter: 2019Q4

REPORT INFORMATION
  Report Type: Spontaneous
  Country: US (occurrence: US)
  Receive Date: 20191009
  Receipt Date: 20191009
  Transmission Date: 20200122
  Serious: No
  Sender: FDA-Public Use
  Company Number: None

PATIENT
  Age: 28 Year
  Sex: Female

DRUGS (1)
  1. GLATIRAMER PFS INJ  (12/BOX) [Suspect]
     Active Substance: GLATIRAMER
     Dosage: ?          OTHER FREQUENCY:OTHER;?
     Route: 058

REACTIONS (2)
  - Disease recurrence [None]
  - Migraine [None]

NARRATIVE: CASE EVENT DATE: 20191009
